FAERS Safety Report 4667373-6 (Version None)
Quarter: 2005Q2

REPORT INFORMATION
  Report Type: 
  Country: None (occurrence: None)
  Receive Date: 20050520
  Receipt Date: 20050509
  Transmission Date: 20051028
  Serious: Yes (Hospitalization)
  Sender: FDA-Public Use
  Company Number: GB-BRISTOL-MYERS SQUIBB COMPANY-12962478

PATIENT
  Sex: Male

DRUGS (1)
  1. ABILIFY [Suspect]
     Route: 048

REACTIONS (5)
  - AGGRESSION [None]
  - ANGER [None]
  - PARANOIA [None]
  - PERSONALITY CHANGE [None]
  - PSYCHOTIC DISORDER [None]
